FAERS Safety Report 13485385 (Version 1)
Quarter: 2017Q2

REPORT INFORMATION
  Report Type: Spontaneous
  Country: US (occurrence: US)
  Receive Date: 20170426
  Receipt Date: 20170426
  Transmission Date: 20170830
  Serious: Yes (Hospitalization)
  Sender: FDA-Public Use
  Company Number: None

PATIENT
  Age: 79 Year
  Sex: Male
  Weight: 86.26 kg

DRUGS (13)
  1. SYNTHROID [Concomitant]
     Active Substance: LEVOTHYROXINE SODIUM
  2. COREG [Concomitant]
     Active Substance: CARVEDILOL
  3. COZAAR [Concomitant]
     Active Substance: LOSARTAN POTASSIUM
  4. MAGNISIUM [Concomitant]
  5. BRILINTA [Concomitant]
     Active Substance: TICAGRELOR
  6. VITAMIN D3 [Concomitant]
     Active Substance: CHOLECALCIFEROL
  7. PROBIOTIC [Concomitant]
     Active Substance: PROBIOTICS NOS
  8. COQ10 [Concomitant]
     Active Substance: UBIDECARENONE
  9. EFFIENT [Suspect]
     Active Substance: PRASUGREL HYDROCHLORIDE
     Indication: BLOOD DISORDER
     Route: 048
     Dates: start: 20160308, end: 20160312
  10. PRILOSEC [Concomitant]
     Active Substance: OMEPRAZOLE MAGNESIUM
  11. ASPRIN [Concomitant]
     Active Substance: ASPIRIN
  12. MELATONIN [Concomitant]
     Active Substance: MELATONIN
  13. NORVASC [Concomitant]
     Active Substance: AMLODIPINE BESYLATE

REACTIONS (7)
  - Hallucination [None]
  - Drug ineffective [None]
  - Visual impairment [None]
  - Angina pectoris [None]
  - Vision blurred [None]
  - Dizziness [None]
  - Eye pain [None]

NARRATIVE: CASE EVENT DATE: 20160311
